FAERS Safety Report 6044263-8 (Version None)
Quarter: 2009Q1

REPORT INFORMATION
  Report Type: 
  Country: None (occurrence: None)
  Receive Date: 20090120
  Receipt Date: 20090109
  Transmission Date: 20090719
  Serious: Yes (Disabling, Other)
  Sender: FDA-Public Use
  Company Number: US-MERCK-0807USA04945

PATIENT
  Age: 45 Year
  Sex: Female
  Weight: 53 kg

DRUGS (4)
  1. FOSAMAX [Suspect]
     Indication: OSTEOPOROSIS
     Route: 048
     Dates: start: 19980601
  2. FOSAMAX [Suspect]
     Route: 048
     Dates: end: 20060701
  3. FOSAMAX [Suspect]
     Indication: OSTEOPENIA
     Route: 048
     Dates: start: 19980601
  4. FOSAMAX [Suspect]
     Route: 048
     Dates: end: 20060701

REACTIONS (24)
  - ASTHMA [None]
  - BURSITIS [None]
  - CONJUNCTIVITIS [None]
  - CYSTITIS [None]
  - DENTAL CARIES [None]
  - ECZEMA [None]
  - GASTROOESOPHAGEAL REFLUX DISEASE [None]
  - HYPERSENSITIVITY [None]
  - JAW DISORDER [None]
  - JOINT SPRAIN [None]
  - MELANOCYTIC NAEVUS [None]
  - MIGRAINE [None]
  - NEUTROPENIA [None]
  - NIPPLE EXUDATE BLOODY [None]
  - ORAL TORUS [None]
  - OSTEOMYELITIS [None]
  - OSTEONECROSIS [None]
  - PALPITATIONS [None]
  - PHARYNGITIS [None]
  - RHINITIS ALLERGIC [None]
  - TOOTH ABSCESS [None]
  - TOOTH DISORDER [None]
  - TOOTHACHE [None]
  - UPPER RESPIRATORY TRACT INFECTION [None]
